FAERS Safety Report 4933612-7 (Version None)
Quarter: 2006Q1

REPORT INFORMATION
  Report Type: 
  Country: None (occurrence: None)
  Receive Date: 20060111
  Receipt Date: 20050811
  Transmission Date: 20060701
  Serious: Yes (Hospitalization)
  Sender: FDA-Public Use
  Company Number: A001-002-006610

PATIENT
  Sex: Male

DRUGS (4)
  1. ARICEPT [Suspect]
     Indication: BIPOLAR DISORDER
     Dosage: 10 MG, 1 IN 1 D; ORAL
     Route: 048
     Dates: start: 19970101, end: 20050701
  2. PAXIL [Suspect]
     Indication: BIPOLAR DISORDER
     Dosage: ORAL
     Route: 048
     Dates: end: 20050701
  3. DEPAKOTE [Concomitant]
  4. ZYPREXA [Concomitant]

REACTIONS (1)
  - BRADYCARDIA [None]
